FAERS Safety Report 24965030 (Version 1)
Quarter: 2025Q1

REPORT INFORMATION
  Report Type: Spontaneous
  Country: US (occurrence: None)
  Receive Date: 20250211
  Receipt Date: 20250211
  Transmission Date: 20250409
  Serious: Yes (Other)
  Sender: FDA-CTU
  Company Number: None

PATIENT
  Age: 59 Year
  Sex: Male
  Weight: 81.65 kg

DRUGS (14)
  1. DEVICE [Suspect]
     Active Substance: DEVICE
  2. LAMICTAL [Concomitant]
     Active Substance: LAMOTRIGINE
  3. METHADONE [Concomitant]
     Active Substance: METHADONE HYDROCHLORIDE
  4. KLONOPIN [Concomitant]
     Active Substance: CLONAZEPAM
  5. SONATA [Concomitant]
     Active Substance: ZALEPLON
  6. LISINOPRIL [Concomitant]
     Active Substance: LISINOPRIL
  7. TRINTELLIX [Concomitant]
     Active Substance: VORTIOXETINE HYDROBROMIDE
  8. SINGULAIR [Concomitant]
     Active Substance: MONTELUKAST SODIUM
  9. ALFUZOSIN [Concomitant]
     Active Substance: ALFUZOSIN
  10. VITAMIN E [Concomitant]
     Active Substance: .ALPHA.-TOCOPHEROL
  11. VITAMIN C [Concomitant]
     Active Substance: ASCORBIC ACID
  12. VITAMIN D NOS [Concomitant]
     Active Substance: CHOLECALCIFEROL\ERGOCALCIFEROL
  13. CLARITIN [Concomitant]
     Active Substance: LORATADINE
  14. LIDOCAINE [Suspect]
     Active Substance: LIDOCAINE

REACTIONS (4)
  - Penile necrosis [None]
  - Deformity [None]
  - Skin mass [None]
  - Malignant melanoma [None]

NARRATIVE: CASE EVENT DATE: 20240123
